FAERS Safety Report 25213321 (Version 2)
Quarter: 2025Q2

REPORT INFORMATION
  Report Type: Spontaneous
  Country: IT (occurrence: IT)
  Receive Date: 20250418
  Receipt Date: 20250422
  Transmission Date: 20250716
  Serious: Yes (Death, Hospitalization)
  Sender: PFIZER
  Company Number: None

PATIENT
  Age: 79 Year
  Sex: Male
  Weight: 95 kg

DRUGS (7)
  1. CARBOPLATIN [Suspect]
     Active Substance: CARBOPLATIN
     Indication: Lung adenocarcinoma
     Dosage: 390 MG, MONTHLY
     Route: 042
     Dates: start: 20241213, end: 20250115
  2. KEYTRUDA [Suspect]
     Active Substance: PEMBROLIZUMAB
     Indication: Lung adenocarcinoma
     Dosage: 200 MG, MONTHLY
     Route: 042
     Dates: start: 20241213, end: 20250115
  3. ALIMTA [Suspect]
     Active Substance: PEMETREXED DISODIUM
     Indication: Lung adenocarcinoma
     Dosage: 650 MG, MONTHLY
     Route: 042
     Dates: start: 20241213, end: 20250115
  4. LISINOPRIL [Concomitant]
     Active Substance: LISINOPRIL
     Indication: Hypertension
     Dosage: 5 MG, 1X/DAY
     Route: 048
  5. ELIQUIS [Concomitant]
     Active Substance: APIXABAN
     Indication: Atrial fibrillation
     Dosage: 5 MG, 2X/DAY
     Route: 048
  6. ATORVASTATIN [Concomitant]
     Active Substance: ATORVASTATIN
     Indication: Hypercholesterolaemia
     Dosage: 20 MG, 1X/DAY
     Route: 048
  7. DILTIAZEM [Concomitant]
     Active Substance: DILTIAZEM

REACTIONS (1)
  - Immune-mediated lung disease [Fatal]

NARRATIVE: CASE EVENT DATE: 20250131
